FAERS Safety Report 4616710-7 (Version None)
Quarter: 2005Q1

REPORT INFORMATION
  Report Type: 
  Country: None (occurrence: None)
  Receive Date: 20050321
  Receipt Date: 20050314
  Transmission Date: 20050727
  Serious: Yes (Hospitalization)
  Sender: FDA-Public Use
  Company Number: 2004AP04479

PATIENT
  Age: 60 Year
  Sex: Male

DRUGS (9)
  1. CASODEX [Suspect]
     Indication: PROSTATE CANCER
     Dosage: 80 MG DAILY PO
     Route: 048
     Dates: start: 20040609, end: 20040728
  2. LEUPLIN [Concomitant]
  3. FERRUM [Concomitant]
  4. EPOGIN [Concomitant]
  5. MEVALOTIN [Concomitant]
  6. COMELIAN [Concomitant]
  7. NITOROL [Concomitant]
  8. RIZE [Concomitant]
  9. VEEN D [Concomitant]

REACTIONS (6)
  - ALANINE AMINOTRANSFERASE INCREASED [None]
  - ASPARTATE AMINOTRANSFERASE INCREASED [None]
  - BLOOD ALKALINE PHOSPHATASE INCREASED [None]
  - BLOOD CHOLESTEROL INCREASED [None]
  - BLOOD LACTATE DEHYDROGENASE DECREASED [None]
  - HEPATIC FUNCTION ABNORMAL [None]
